FAERS Safety Report 13312100 (Version 1)
Quarter: 2017Q1

REPORT INFORMATION
  Report Type: Spontaneous
  Country: US (occurrence: US)
  Receive Date: 20170309
  Receipt Date: 20170309
  Transmission Date: 20170428
  Serious: No
  Sender: FDA-Public Use
  Company Number: US-ASTELLAS-2016US048183

PATIENT
  Age: 79 Year
  Sex: Female

DRUGS (1)
  1. CRESEMBA [Suspect]
     Active Substance: ISAVUCONAZONIUM SULFATE
     Indication: ASPERGILLUS INFECTION
     Dosage: 372 MG (2X186 MG), ONCE DAILY
     Route: 048
     Dates: start: 20160902, end: 20161216

REACTIONS (2)
  - Rash [Unknown]
  - Diarrhoea [Unknown]

NARRATIVE: CASE EVENT DATE: 20161124
